FAERS Safety Report 12075599 (Version 2)
Quarter: 2016Q1

REPORT INFORMATION
  Report Type: Spontaneous
  Country: DE (occurrence: DE)
  Receive Date: 20160213
  Receipt Date: 20160225
  Transmission Date: 20160526
  Serious: Yes (Other)
  Sender: FDA-Public Use
  Company Number: DE-AMGEN-DEUSP2016016885

PATIENT
  Age: 8 Decade
  Sex: Female

DRUGS (1)
  1. ENBREL [Suspect]
     Active Substance: ETANERCEPT
     Indication: RHEUMATOID ARTHRITIS
     Dosage: UNK
     Route: 065

REACTIONS (8)
  - Impaired healing [Unknown]
  - Abdominal distension [Unknown]
  - Injection site swelling [Unknown]
  - Pneumonia [Unknown]
  - Injection site erythema [Unknown]
  - Pain [Unknown]
  - Dysuria [Unknown]
  - Injection site pruritus [Unknown]
